FAERS Safety Report 9452422 (Version 1)
Quarter: 2013Q3

REPORT INFORMATION
  Report Type: Spontaneous
  Country: US (occurrence: US)
  Receive Date: 20130812
  Receipt Date: 20130812
  Transmission Date: 20140515
  Serious: Yes (Hospitalization)
  Sender: FDA-Public Use
  Company Number: US-BAYER-2013-095396

PATIENT
  Age: 42 Year
  Sex: Female
  Weight: 120.18 kg

DRUGS (24)
  1. YASMIN [Suspect]
  2. OCELLA [Suspect]
  3. PROVIGIL [Concomitant]
     Indication: SLEEP APNOEA SYNDROME
     Dosage: 200 MG, BID
     Route: 048
  4. PROPOFOL [Concomitant]
     Dosage: UNK
     Dates: start: 20090611
  5. LEVOTHYROXINE [Concomitant]
     Indication: THYROID DISORDER
     Dosage: 150 MCG
     Route: 048
  6. CYMBALTA [Concomitant]
     Indication: DEPRESSION
     Dosage: 90 MG, UNK
     Route: 048
  7. SINGULAIR [Concomitant]
     Indication: ASTHMA
     Dosage: 10 MG, UNK
     Route: 048
  8. ZYRTEC [Concomitant]
     Indication: MULTIPLE ALLERGIES
     Dosage: UNK
     Route: 048
  9. RELPAX [Concomitant]
     Indication: MIGRAINE
     Dosage: 40 MG, UNK
     Route: 048
  10. LEVSIN [Concomitant]
     Indication: MUSCLE SPASMS
     Dosage: 0.125 DAILY
     Route: 048
  11. ALBUTEROL INHALER [Concomitant]
  12. ASTELIN [Concomitant]
     Dosage: 137 MCG/SPRAY
  13. MELOXICAM [Concomitant]
     Dosage: 7.5 MG, UNK
     Route: 048
  14. CYCLOBENZAPRINE [Concomitant]
     Route: 048
  15. ABREVA [Concomitant]
     Route: 061
  16. TYLENOL [PARACETAMOL] [Concomitant]
     Route: 048
  17. DIFLUCAN [Concomitant]
     Route: 048
  18. MUCINEX [Concomitant]
     Route: 048
  19. CELEBREX [Concomitant]
     Route: 048
  20. SYNTHROID [Concomitant]
  21. VENTOLIN [Concomitant]
  22. MOBIC [Concomitant]
  23. IBUPROFEN [Concomitant]
     Indication: PAIN
  24. NAPROXEN [Concomitant]
     Indication: PAIN

REACTIONS (1)
  - Deep vein thrombosis [Recovered/Resolved]
